FAERS Safety Report 7932831-5 (Version None)
Quarter: 2011Q4

REPORT INFORMATION
  Report Type: 
  Country: None (occurrence: None)
  Receive Date: 20111122
  Receipt Date: 20111110
  Transmission Date: 20120403
  Serious: Yes (Hospitalization)
  Sender: FDA-Public Use
  Company Number: GR-PFIZER INC-2011227744

PATIENT
  Age: 47 Year
  Sex: Female
  Weight: 69 kg

DRUGS (9)
  1. ZANTAC [Concomitant]
     Indication: PREMEDICATION
     Dosage: 50 MG, EVERY THERAPY
     Route: 042
     Dates: start: 20110607
  2. FENISTIL [Concomitant]
     Indication: PREMEDICATION
     Dosage: 8 MG, EVERY THERAPY
     Route: 042
     Dates: start: 20110607
  3. TEMSIROLIMUS [Suspect]
     Indication: PANCREATIC CARCINOMA RECURRENT
     Dosage: 25 MG, WEEKLY
     Route: 042
     Dates: start: 20110607, end: 20110621
  4. GEMZAR [Suspect]
     Indication: PANCREATIC CARCINOMA METASTATIC
     Dosage: 1360 MG (800 MG/M2), EVERY 2 WEEKS
     Route: 042
     Dates: start: 20110607, end: 20110621
  5. ZOFRON [Concomitant]
     Indication: PREMEDICATION
     Dosage: 8 MG, EVERY THERAPY
     Route: 042
     Dates: start: 20110607
  6. CILROTON [Concomitant]
     Indication: VOMITING
     Dosage: 200 ML, 1X/DAY
     Dates: start: 20110623, end: 20110626
  7. LAPRAZOL [Concomitant]
     Indication: PROPHYLAXIS AGAINST GASTROINTESTINAL ULCER
     Dosage: 15 MG, 1X/DAY
     Dates: start: 20110623, end: 20110626
  8. DEXAMETHASONE [Concomitant]
     Indication: PREMEDICATION
     Dosage: 4 MG, EVERY THERAPY
     Route: 042
     Dates: start: 20110607
  9. PRIMPERAN TAB [Concomitant]
     Indication: VOMITING
     Dosage: 125 ML, 1X/DAY
     Dates: start: 20110623, end: 20110626

REACTIONS (1)
  - CONSTIPATION [None]
